FAERS Safety Report 11082847 (Version 1)
Quarter: 2015Q2

REPORT INFORMATION
  Report Type: Spontaneous
  Country: US (occurrence: US)
  Receive Date: 20150501
  Receipt Date: 20150501
  Transmission Date: 20150821
  Serious: Yes (Other)
  Sender: FDA-Public Use
  Company Number: US-ABBVIE-14P-163-1292655-00

PATIENT
  Age: 21 Year
  Sex: Male

DRUGS (7)
  1. ANDROGEL [Suspect]
     Active Substance: TESTOSTERONE
     Dosage: 4 PUMPS PER DAY
     Route: 062
     Dates: start: 201408
  2. CYTOMEL [Concomitant]
     Active Substance: LIOTHYRONINE SODIUM
     Indication: PRODUCT USED FOR UNKNOWN INDICATION
  3. ANDROGEL [Suspect]
     Active Substance: TESTOSTERONE
     Indication: BLOOD TESTOSTERONE DECREASED
     Dosage: 4 PUMPS PER DAY
     Route: 062
     Dates: end: 201406
  4. ANDROGEL [Suspect]
     Active Substance: TESTOSTERONE
     Indication: PROLACTIN-PRODUCING PITUITARY TUMOUR
     Dosage: 3 PUMPS PER DAY
     Route: 062
     Dates: start: 201406, end: 201408
  5. SYNTHROID [Concomitant]
     Active Substance: LEVOTHYROXINE SODIUM
     Indication: PRODUCT USED FOR UNKNOWN INDICATION
  6. CABERGOLINE. [Concomitant]
     Active Substance: CABERGOLINE
     Indication: PROLACTIN-PRODUCING PITUITARY TUMOUR
     Dates: end: 201407
  7. ANDROGEL [Suspect]
     Active Substance: TESTOSTERONE
     Indication: BLOOD TESTOSTERONE DECREASED
     Route: 062
     Dates: end: 2014

REACTIONS (24)
  - Fatigue [Unknown]
  - Respiratory rate increased [Recovering/Resolving]
  - Hypoaesthesia [Unknown]
  - Hyperhidrosis [Recovered/Resolved]
  - Pain in extremity [Recovering/Resolving]
  - Electrocardiogram T wave abnormal [Not Recovered/Not Resolved]
  - White blood cell count decreased [Not Recovered/Not Resolved]
  - Fatigue [Not Recovered/Not Resolved]
  - Blood prolactin increased [Unknown]
  - Chest pain [Recovering/Resolving]
  - Chest discomfort [Recovering/Resolving]
  - Heart rate increased [Recovering/Resolving]
  - Blood testosterone decreased [Unknown]
  - Pain in extremity [Recovered/Resolved]
  - Limb discomfort [Recovered/Resolved]
  - Tremor [Recovering/Resolving]
  - Pulmonary embolism [Unknown]
  - Chest pain [Recovered/Resolved]
  - Hyperhidrosis [Recovering/Resolving]
  - Blood testosterone increased [Recovered/Resolved]
  - Amnesia [Unknown]
  - Chest discomfort [Recovered/Resolved]
  - Limb discomfort [Recovering/Resolving]
  - Dyspnoea [Recovering/Resolving]

NARRATIVE: CASE EVENT DATE: 2014
